FAERS Safety Report 16324401 (Version 1)
Quarter: 2019Q2

REPORT INFORMATION
  Report Type: Spontaneous
  Country: US (occurrence: US)
  Receive Date: 20190411
  Receipt Date: 20190411
  Transmission Date: 20190711
  Serious: Yes (Hospitalization)
  Sender: FDA-Public Use
  Company Number: None

PATIENT
  Age: 58 Year
  Sex: Female
  Weight: 67.7 kg

DRUGS (3)
  1. GEMCITABINE HYDROCHLORIDE. [Suspect]
     Active Substance: GEMCITABINE HYDROCHLORIDE
     Dates: end: 20190327
  2. CISPLATIN. [Suspect]
     Active Substance: CISPLATIN
     Dates: end: 20190328
  3. NEULASTA [Suspect]
     Active Substance: PEGFILGRASTIM
     Dates: end: 20190329

REACTIONS (4)
  - Nausea [None]
  - Vomiting [None]
  - Hypokalaemia [None]
  - Pain [None]

NARRATIVE: CASE EVENT DATE: 20190331
